FAERS Safety Report 24034492 (Version 2)
Quarter: 2025Q2

REPORT INFORMATION
  Report Type: Spontaneous
  Country: US (occurrence: US)
  Receive Date: 20240701
  Receipt Date: 20250523
  Transmission Date: 20250716
  Serious: Yes (Death, Hospitalization, Other)
  Sender: PFIZER
  Company Number: US-PFIZER INC-PV202400085245

PATIENT
  Age: 63 Year
  Sex: Female

DRUGS (8)
  1. VORICONAZOLE [Suspect]
     Active Substance: VORICONAZOLE
     Indication: Stenotrophomonas infection
  2. VORICONAZOLE [Suspect]
     Active Substance: VORICONAZOLE
     Indication: Pneumonia
  3. VORICONAZOLE [Suspect]
     Active Substance: VORICONAZOLE
     Indication: Scedosporium infection
  4. VANCOMYCIN HYDROCHLORIDE [Suspect]
     Active Substance: VANCOMYCIN HYDROCHLORIDE
     Indication: Antibiotic prophylaxis
  5. CEFEPIME [Suspect]
     Active Substance: CEFEPIME HYDROCHLORIDE
     Indication: Pneumonia
  6. AZITHROMYCIN [Concomitant]
     Active Substance: AZITHROMYCIN
     Indication: Pneumonia
  7. LEVOFLOXACIN [Concomitant]
     Active Substance: LEVOFLOXACIN
     Indication: Stenotrophomonas infection
  8. MINOCYCLINE [Concomitant]
     Active Substance: MINOCYCLINE HYDROCHLORIDE
     Indication: Pneumonia

REACTIONS (1)
  - Drug resistance [Fatal]
